FAERS Safety Report 21699377 (Version 1)
Quarter: 2022Q4

REPORT INFORMATION
  Report Type: Report from Study
  Country: PR (occurrence: PR)
  Receive Date: 20221208
  Receipt Date: 20221208
  Transmission Date: 20230113
  Serious: No
  Sender: FDA-Public Use
  Company Number: PR-ABBVIE-4179147

PATIENT
  Sex: Male
  Weight: 75.749 kg

DRUGS (4)
  1. HUMIRA [Suspect]
     Active Substance: ADALIMUMAB
     Indication: Crohn^s disease
     Dosage: STRENGTH 40MG
     Route: 058
     Dates: start: 2019
  2. TOZINAMERAN [Concomitant]
     Active Substance: TOZINAMERAN
     Indication: COVID-19 immunisation
     Dosage: 1ST DOSE?1 IN ONCE
     Route: 030
     Dates: start: 20210415, end: 20210415
  3. TOZINAMERAN [Concomitant]
     Active Substance: TOZINAMERAN
     Indication: COVID-19 immunisation
     Dosage: 2ND DOSE?1 IN ONCE
     Route: 030
     Dates: start: 20210506, end: 20210506
  4. PREDNISONE [Concomitant]
     Active Substance: PREDNISONE
     Indication: Crohn^s disease
     Route: 048
     Dates: start: 2018, end: 202208

REACTIONS (4)
  - Diarrhoea [Not Recovered/Not Resolved]
  - Therapeutic product effect decreased [Unknown]
  - Gastrointestinal pain [Not Recovered/Not Resolved]
  - Rectal haemorrhage [Recovering/Resolving]

NARRATIVE: CASE EVENT DATE: 20220701
